FAERS Safety Report 21775721 (Version 3)
Quarter: 2023Q1

REPORT INFORMATION
  Report Type: Report from Study
  Country: US (occurrence: US)
  Receive Date: 20221226
  Receipt Date: 20230316
  Transmission Date: 20230418
  Serious: No
  Sender: FDA-Public Use
  Company Number: US-002147023-NVSC2022US295458

PATIENT
  Sex: Male

DRUGS (2)
  1. TREPROSTINIL [Suspect]
     Active Substance: TREPROSTINIL
     Indication: Pulmonary arterial hypertension
     Dosage: 30 NG/KG/MIN, CONT
     Route: 042
     Dates: start: 202204
  2. TREPROSTINIL [Suspect]
     Active Substance: TREPROSTINIL
     Dosage: (2.5 MILLIGRAMS PER MILLILITER) 43 NG/KG/MIN, CONT)
     Route: 042
     Dates: start: 202204

REACTIONS (6)
  - Oxygen consumption increased [Unknown]
  - Dysstasia [Recovered/Resolved]
  - Defaecation urgency [Unknown]
  - Dizziness [Recovered/Resolved]
  - Pain in extremity [Unknown]
  - Product dose omission issue [Unknown]
